FAERS Safety Report 10618726 (Version 1)
Quarter: 2014Q4

REPORT INFORMATION
  Report Type: Spontaneous
  Country: TR (occurrence: None)
  Receive Date: 20141124
  Receipt Date: 20141124
  Transmission Date: 20150529
  Serious: Yes (Other)
  Sender: FDA-Public Use
  Company Number: TR-ZYDUS-005521

PATIENT
  Age: 59 Year
  Sex: Male

DRUGS (1)
  1. WARFARIN (WARFARIN) [Suspect]
     Active Substance: WARFARIN
     Indication: ATRIAL FIBRILLATION
     Route: 048

REACTIONS (3)
  - Joint swelling [None]
  - Haematoma [None]
  - Chest pain [None]
